FAERS Safety Report 4778992-0 (Version None)
Quarter: 2005Q3

REPORT INFORMATION
  Report Type: 
  Country: None (occurrence: None)
  Receive Date: 20050914
  Receipt Date: 20050520
  Transmission Date: 20060218
  Serious: Yes (Other)
  Sender: FDA-Public Use
  Company Number: 405552

PATIENT
  Sex: Female

DRUGS (4)
  1. BONIVA [Suspect]
     Indication: DRUG USE FOR UNKNOWN INDICATION
     Dosage: ORAL
     Route: 048
  2. NEXIUM [Concomitant]
  3. COUMADIN [Concomitant]
  4. DIGOXIN [Concomitant]

REACTIONS (1)
  - BONE PAIN [None]
